FAERS Safety Report 18383423 (Version 2)
Quarter: 2021Q1

REPORT INFORMATION
  Report Type: Spontaneous
  Country: JP (occurrence: JP)
  Receive Date: 20201014
  Receipt Date: 20210326
  Transmission Date: 20210419
  Serious: Yes (Death, Other)
  Sender: FDA-Public Use
  Company Number: JP-JNJFOC-20201016589

PATIENT
  Age: 83 Year
  Sex: Male

DRUGS (1)
  1. ZYTIGA [Suspect]
     Active Substance: ABIRATERONE ACETATE
     Indication: PRODUCT USED FOR UNKNOWN INDICATION
     Route: 048
     Dates: start: 202007

REACTIONS (5)
  - Off label use [Unknown]
  - Immobilisation syndrome [Unknown]
  - Cellulitis [Unknown]
  - Infection [Fatal]
  - Prescribed underdose [Unknown]

NARRATIVE: CASE EVENT DATE: 202007
